FAERS Safety Report 5313380-X (Version None)
Quarter: 2007Q2

REPORT INFORMATION
  Report Type: 
  Country: None (occurrence: None)
  Receive Date: 20070501
  Receipt Date: 20070418
  Transmission Date: 20071010
  Serious: Yes (Other)
  Sender: FDA-Public Use
  Company Number: FR-JNJFOC-20030603423

PATIENT
  Age: 59 Year
  Sex: Female

DRUGS (9)
  1. REMICADE [Suspect]
     Route: 042
  2. REMICADE [Suspect]
     Dosage: DAY 45
     Route: 042
  3. REMICADE [Suspect]
     Dosage: DAY 15
     Route: 042
  4. REMICADE [Suspect]
     Indication: RHEUMATOID ARTHRITIS
     Dosage: DAY 1
     Route: 042
  5. METHOTREXATE [Concomitant]
     Indication: RHEUMATOID ARTHRITIS
  6. METHYLPREDNISOLONE 16MG TAB [Concomitant]
  7. LEVOTHYROXINE SODIUM [Concomitant]
  8. RESIDRONATE [Concomitant]
  9. VITAMIN D3-CALCIUM [Concomitant]

REACTIONS (6)
  - ANTINUCLEAR ANTIBODY INCREASED [None]
  - DNA ANTIBODY [None]
  - INFLAMMATION [None]
  - RENAL FAILURE [None]
  - SYSTEMIC LUPUS ERYTHEMATOSUS [None]
  - TOXIC SKIN ERUPTION [None]
